FAERS Safety Report 5135695-0 (Version None)
Quarter: 2006Q4

REPORT INFORMATION
  Report Type: 
  Country: None (occurrence: None)
  Receive Date: 20061024
  Receipt Date: 20061024
  Transmission Date: 20070319
  Serious: Yes (Other)
  Sender: FDA-Public Use
  Company Number: None

PATIENT
  Age: 42 Year
  Sex: Male
  Weight: 77.5 kg

DRUGS (3)
  1. ISOVUE-300 [Suspect]
     Indication: SCAN WITH CONTRAST
     Dosage: 130 ML  IV
     Route: 042
     Dates: start: 20060824
  2. OMEPRAZOLE [Concomitant]
  3. DOCUSATE [Concomitant]

REACTIONS (2)
  - PRURITUS [None]
  - URTICARIA [None]
